FAERS Safety Report 5122442-1 (Version None)
Quarter: 2006Q4

REPORT INFORMATION
  Report Type: 
  Country: None (occurrence: None)
  Receive Date: 20061004
  Receipt Date: 20060920
  Transmission Date: 20070319
  Serious: Yes (Hospitalization, Other)
  Sender: FDA-Public Use
  Company Number: A-US2006-13060

PATIENT
  Age: 76 Year
  Sex: Female
  Weight: 69.8 kg

DRUGS (11)
  1. TRACLEER [Suspect]
     Indication: PULMONARY HYPERTENSION
     Dosage: 62.5 MG,  BID, ORAL; 125, MG, BID, ORAL
     Route: 048
     Dates: start: 20020801, end: 20020822
  2. TRACLEER [Suspect]
     Indication: PULMONARY HYPERTENSION
     Dosage: 62.5 MG,  BID, ORAL; 125, MG, BID, ORAL
     Route: 048
     Dates: start: 20020823, end: 20060803
  3. COUMADIN [Concomitant]
  4. FOSAMAX [Concomitant]
  5. LASIX (FUROSEDMIDE) [Concomitant]
  6. LANOXIN [Concomitant]
  7. LOTENSIN [Concomitant]
  8. PRAVACHOL [Concomitant]
  9. K-DUR 10 [Concomitant]
  10. CALCIUM (CALCIUM) [Concomitant]
  11. ALDACTONE [Concomitant]

REACTIONS (4)
  - ALANINE AMINOTRANSFERASE INCREASED [None]
  - ASPARTATE AMINOTRANSFERASE INCREASED [None]
  - FATIGUE [None]
  - NAUSEA [None]
